FAERS Safety Report 22160125 (Version 1)
Quarter: 2023Q1

REPORT INFORMATION
  Report Type: Report from Study
  Country: US (occurrence: US)
  Receive Date: 20230331
  Receipt Date: 20230331
  Transmission Date: 20230418
  Serious: Yes (Hospitalization)
  Sender: FDA-Public Use
  Company Number: US-002147023-NVSC2023US071264

PATIENT
  Age: 0 Year
  Sex: Female

DRUGS (1)
  1. ZOLGENSMA [Suspect]
     Active Substance: ONASEMNOGENE ABEPARVOVEC-XIOI
     Indication: Spinal muscular atrophy
     Dosage: 1 DOSAGE FORM, ONCE/SINGLE (ONE SINGLE DOSE)
     Route: 042
     Dates: start: 20230302, end: 20230302

REACTIONS (2)
  - Rhinovirus infection [Unknown]
  - Bronchiolitis [Unknown]

NARRATIVE: CASE EVENT DATE: 20230322
